FAERS Safety Report 8078916-7 (Version None)
Quarter: 2012Q1

REPORT INFORMATION
  Report Type: 
  Country: None (occurrence: None)
  Receive Date: 20120128
  Receipt Date: 20110423
  Transmission Date: 20120608
  Serious: No
  Sender: FDA-Public Use
  Company Number: US-ABBOTT-11P-163-0721407-00

PATIENT
  Age: 30 Year
  Sex: Female

DRUGS (7)
  1. MELOXICAM [Concomitant]
     Indication: PRODUCT USED FOR UNKNOWN INDICATION
     Dosage: EVERY MORNING
  2. PREDNISONE TAB [Concomitant]
     Indication: INFLAMMATION
     Dosage: EVERY MORNING
  3. HUMIRA [Suspect]
     Indication: SPONDYLITIS
     Dates: start: 20110201
  4. GABAPENTIN [Concomitant]
     Indication: PAIN
  5. ACETAMINOPHEN [Concomitant]
     Indication: PRODUCT USED FOR UNKNOWN INDICATION
  6. AMITRIPTYLINE HCL [Concomitant]
     Indication: PAIN
     Dosage: AT BEDTIME
  7. FLEXERIL [Concomitant]
     Indication: PAIN
     Dosage: AT BEDTIME

REACTIONS (3)
  - INJECTION SITE HAEMATOMA [None]
  - INJECTION SITE PRURITUS [None]
  - INJECTION SITE PAPULE [None]
